FAERS Safety Report 5528505-0 (Version None)
Quarter: 2007Q4

REPORT INFORMATION
  Report Type: 
  Country: None (occurrence: None)
  Receive Date: 20071128
  Receipt Date: 20071123
  Transmission Date: 20080405
  Serious: Yes (Hospitalization)
  Sender: FDA-Public Use
  Company Number: DK-MERCK-0711DNK00005

PATIENT
  Age: 66 Year
  Sex: Male
  Weight: 80 kg

DRUGS (2)
  1. ZETIA [Suspect]
     Route: 048
     Dates: start: 20071101, end: 20071107
  2. SIMVASTATIN [Concomitant]
     Route: 048
     Dates: start: 20030101

REACTIONS (1)
  - ECZEMA [None]
